FAERS Safety Report 9280788 (Version 2)
Quarter: 2013Q2

REPORT INFORMATION
  Report Type: Spontaneous
  Country: US (occurrence: US)
  Receive Date: 20130509
  Receipt Date: 20130606
  Transmission Date: 20140414
  Serious: No
  Sender: FDA-Public Use
  Company Number: US-PFIZER INC-2013138678

PATIENT
  Age: 65 Year
  Sex: Female
  Weight: 52.6 kg

DRUGS (6)
  1. ESTRING [Suspect]
     Indication: VULVOVAGINAL DRYNESS
     Dosage: 2 MG, EVERY 90 DAYS
     Route: 067
     Dates: start: 20130325, end: 20130417
  2. ESTRING [Suspect]
     Indication: ATROPHIC VULVOVAGINITIS
     Dosage: UNK
     Dates: start: 20130413, end: 20130420
  3. LEVOXYL [Concomitant]
     Indication: THYROID DISORDER
     Dosage: 75 UG, 2X/WEEK (SATURDAY AND SUNDAY)
  4. LEVOXYL [Concomitant]
     Dosage: 50 UG, FOR REST FIVE DAYS IN A WEEK
  5. CYTOMEL [Concomitant]
     Indication: THYROID DISORDER
     Dosage: 5 UG, FOUR TIMES IN A WEEK
  6. DHEA [Concomitant]
     Indication: HORMONE THERAPY
     Dosage: 4 DF, 1X/DAY
     Route: 060

REACTIONS (8)
  - Hypersensitivity [Recovered/Resolved]
  - Vaginal inflammation [Recovered/Resolved]
  - Vulvovaginal pruritus [Recovered/Resolved]
  - Vulvovaginal erythema [Recovered/Resolved]
  - Vaginal infection [Recovered/Resolved]
  - Vulvovaginal pain [Recovered/Resolved]
  - Vulvovaginal burning sensation [Recovered/Resolved]
  - Vaginal discharge [Recovered/Resolved]
